APPROVED DRUG PRODUCT: ARGATROBAN
Active Ingredient: ARGATROBAN
Strength: 50MG/50ML (1MG/ML)
Dosage Form/Route: INJECTABLE;INJECTION
Application: A214235 | Product #001 | TE Code: AP
Applicant: CAPLIN STERILES LTD
Approved: Jan 21, 2021 | RLD: No | RS: No | Type: RX